FAERS Safety Report 4351449-7 (Version None)
Quarter: 2004Q2

REPORT INFORMATION
  Report Type: 
  Country: None (occurrence: None)
  Receive Date: 20040503
  Receipt Date: 20030107
  Transmission Date: 20050107
  Serious: Yes (Congenital Anomaly)
  Sender: FDA-Public Use
  Company Number: FR-ROCHE-328967

PATIENT
  Sex: Male
  Weight: 3.4 kg

DRUGS (1)
  1. LARIAM [Suspect]
     Indication: PROPHYLAXIS
     Dates: start: 20021127, end: 20021127

REACTIONS (5)
  - CONGENITAL ANOMALY [None]
  - HYPOSPADIAS [None]
  - MATERNAL DRUGS AFFECTING FOETUS [None]
  - TESTICULAR ATROPHY [None]
  - TESTICULAR DISORDER [None]
